FAERS Safety Report 7581321-0 (Version None)
Quarter: 2011Q2

REPORT INFORMATION
  Report Type: 
  Country: None (occurrence: None)
  Receive Date: 20110629
  Receipt Date: 20110621
  Transmission Date: 20111010
  Serious: Yes (Hospitalization)
  Sender: FDA-Public Use
  Company Number: DE-CEPHALON-2011002548

PATIENT
  Sex: Male

DRUGS (3)
  1. RITUXAN [Suspect]
     Indication: NON-HODGKIN'S LYMPHOMA
     Dates: start: 20110418
  2. BENDAMUSTINE HCL [Suspect]
     Indication: NON-HODGKIN'S LYMPHOMA
     Route: 042
     Dates: start: 20110418, end: 20110419
  3. RITUXAN [Suspect]
     Dates: start: 20110601

REACTIONS (2)
  - GENERAL PHYSICAL HEALTH DETERIORATION [None]
  - BLOOD LACTATE DEHYDROGENASE INCREASED [None]
